FAERS Safety Report 7391674-4 (Version None)
Quarter: 2011Q2

REPORT INFORMATION
  Report Type: 
  Country: None (occurrence: None)
  Receive Date: 20110404
  Receipt Date: 20110329
  Transmission Date: 20111010
  Serious: Yes (Death)
  Sender: FDA-Public Use
  Company Number: NL-PFIZER INC-2011070350

PATIENT
  Age: 77 Year
  Sex: Male

DRUGS (1)
  1. IRINOTECAN HCL [Suspect]
     Dosage: 600 MG, UNK
     Dates: start: 20100923

REACTIONS (1)
  - PNEUMONITIS [None]
